FAERS Safety Report 11766273 (Version 2)
Quarter: 2016Q1

REPORT INFORMATION
  Report Type: Spontaneous
  Country: US (occurrence: US)
  Receive Date: 20151123
  Receipt Date: 20160112
  Transmission Date: 20160525
  Serious: Yes (Other)
  Sender: FDA-Public Use
  Company Number: US-ASTRAZENECA-2015SF10586

PATIENT
  Age: 29838 Day
  Sex: Male

DRUGS (3)
  1. XTANDI [Suspect]
     Active Substance: ENZALUTAMIDE
     Indication: PROSTATE CANCER
     Route: 048
     Dates: end: 2015
  2. XTANDI [Suspect]
     Active Substance: ENZALUTAMIDE
     Indication: PROSTATE CANCER
     Route: 048
  3. CRESTOR [Suspect]
     Active Substance: ROSUVASTATIN CALCIUM
     Indication: PRODUCT USED FOR UNKNOWN INDICATION
     Route: 048
     Dates: start: 201510, end: 201510

REACTIONS (15)
  - Somnolence [Recovering/Resolving]
  - Arthralgia [Unknown]
  - Thinking abnormal [Unknown]
  - Muscular weakness [Unknown]
  - Depression [Unknown]
  - Underdose [Unknown]
  - Tremor [Unknown]
  - Headache [Recovering/Resolving]
  - Yawning [Recovering/Resolving]
  - Activities of daily living impaired [Unknown]
  - Peripheral swelling [Recovering/Resolving]
  - Dizziness [Recovered/Resolved]
  - Fall [Unknown]
  - Hot flush [Unknown]
  - Myalgia [Unknown]

NARRATIVE: CASE EVENT DATE: 20150928
